FAERS Safety Report 13064173 (Version 1)
Quarter: 2016Q4

REPORT INFORMATION
  Report Type: Spontaneous
  Country: US (occurrence: US)
  Receive Date: 20161227
  Receipt Date: 20161227
  Transmission Date: 20170207
  Serious: Yes (Other)
  Sender: FDA-Public Use
  Company Number: US-ASTRAZENECA-2016SF34013

PATIENT
  Sex: Female

DRUGS (5)
  1. FASLODEX [Suspect]
     Active Substance: FULVESTRANT
     Dosage: UNKNOWN
     Route: 030
  2. EXEMESTANE. [Concomitant]
     Active Substance: EXEMESTANE
  3. LETROZOLE. [Suspect]
     Active Substance: LETROZOLE
     Route: 065
  4. IBRANCE [Concomitant]
     Active Substance: PALBOCICLIB
     Route: 048
  5. AROMATASE INHIBITORS [Concomitant]
     Active Substance: UNSPECIFIED INGREDIENT

REACTIONS (1)
  - Malignant neoplasm progression [Unknown]
